FAERS Safety Report 13313181 (Version 2)
Quarter: 2020Q3

REPORT INFORMATION
  Report Type: Spontaneous
  Country: FI (occurrence: FI)
  Receive Date: 20170309
  Receipt Date: 20200901
  Transmission Date: 20201102
  Serious: Yes (Death)
  Sender: FDA-Public Use
  Company Number: FI-JNJFOC-20170307740

PATIENT
  Age: 93 Year
  Sex: Male

DRUGS (2)
  1. XARELTO [Suspect]
     Active Substance: RIVAROXABAN
     Indication: ATRIAL FIBRILLATION
  2. XARELTO [Suspect]
     Active Substance: RIVAROXABAN
     Indication: ARRHYTHMIA PROPHYLAXIS
     Dosage: 20 MG, QD
     Route: 048
     Dates: start: 201611

REACTIONS (4)
  - Cardiopulmonary failure [Fatal]
  - Aortic aneurysm rupture [Fatal]
  - Drug level increased [Fatal]
  - Renal failure [Fatal]

NARRATIVE: CASE EVENT DATE: 20170218
